FAERS Safety Report 25738271 (Version 2)
Quarter: 2025Q4

REPORT INFORMATION
  Report Type: Spontaneous
  Country: US (occurrence: US)
  Receive Date: 20250829
  Receipt Date: 20251006
  Transmission Date: 20260117
  Serious: No
  Sender: CIPLA
  Company Number: US-CIPLA LTD.-2025US10506

PATIENT

DRUGS (1)
  1. ALBUTEROL [Suspect]
     Active Substance: ALBUTEROL
     Indication: Chronic obstructive pulmonary disease
     Dosage: 180 MICROGRAM, BID (2 PUFFS EVERY 4 HOURS AS NEEDED BUT WAS JUST TAKING TWICE A DAY, VIA MOUTH THROU
     Dates: end: 2025

REACTIONS (4)
  - Cough [Unknown]
  - Device malfunction [Unknown]
  - Product substitution issue [Unknown]
  - Product use complaint [Unknown]
